FAERS Safety Report 22180930 (Version 1)
Quarter: 2023Q2

REPORT INFORMATION
  Report Type: Spontaneous
  Country: GB (occurrence: GB)
  Receive Date: 20230406
  Receipt Date: 20230406
  Transmission Date: 20230722
  Serious: Yes (Other)
  Sender: FDA-Public Use
  Company Number: None

PATIENT
  Sex: Female

DRUGS (1)
  1. SERTRALINE [Suspect]
     Active Substance: SERTRALINE HYDROCHLORIDE
     Indication: Depression
     Dosage: UP TO 100MG ONCE A DAY

REACTIONS (4)
  - Memory impairment [Not Recovered/Not Resolved]
  - Delirium [Not Recovered/Not Resolved]
  - Mental fatigue [Recovered/Resolved with Sequelae]
  - Apathy [Recovered/Resolved with Sequelae]
